FAERS Safety Report 6680420-5 (Version None)
Quarter: 2010Q2

REPORT INFORMATION
  Report Type: 
  Country: None (occurrence: None)
  Receive Date: 20100414
  Receipt Date: 20100406
  Transmission Date: 20101027
  Serious: Yes (Hospitalization)
  Sender: FDA-Public Use
  Company Number: US-BIOGENIDEC-2009BI003813

PATIENT
  Age: 30 Year
  Sex: Female

DRUGS (4)
  1. TYSABRI [Suspect]
     Indication: MULTIPLE SCLEROSIS
     Route: 042
     Dates: start: 20081007, end: 20090203
  2. TYSABRI [Suspect]
     Route: 042
     Dates: start: 20091222
  3. VITAMIN TAB [Concomitant]
  4. AMPHETAMINES [Concomitant]

REACTIONS (2)
  - PREGNANCY [None]
  - PREMATURE SEPARATION OF PLACENTA [None]
